FAERS Safety Report 23239658 (Version 1)
Quarter: 2023Q4

REPORT INFORMATION
  Report Type: Spontaneous
  Country: US (occurrence: US)
  Receive Date: 20231129
  Receipt Date: 20231129
  Transmission Date: 20240110
  Serious: Yes (Other)
  Sender: FDA-Public Use
  Company Number: US-SUNOVION-2023SUN001268

PATIENT

DRUGS (1)
  1. APTIOM [Suspect]
     Active Substance: ESLICARBAZEPINE ACETATE
     Indication: Seizure
     Dosage: 1200 MG, QD 1-800MG AND 1-400MG APTIOM FOR TOTAL OF 1200MG AT THE SAME TIME DAILY
     Route: 048

REACTIONS (2)
  - Seizure [Unknown]
  - Therapy interrupted [Unknown]
